FAERS Safety Report 10268493 (Version 1)
Quarter: 2014Q2

REPORT INFORMATION
  Report Type: Spontaneous
  Country: GB (occurrence: GB)
  Receive Date: 20140630
  Receipt Date: 20140630
  Transmission Date: 20141212
  Serious: Yes (Death)
  Sender: FDA-Public Use
  Company Number: GB-TEVA-490592ISR

PATIENT
  Age: 93 Year
  Sex: Female
  Weight: 65 kg

DRUGS (3)
  1. DONEPEZIL [Suspect]
     Indication: DEMENTIA ALZHEIMER^S TYPE
     Dosage: 5 MILLIGRAM DAILY; AT NIGHT
     Route: 048
     Dates: start: 20140105, end: 20140604
  2. AMITRIPTYLINE [Concomitant]
  3. CODEINE [Concomitant]

REACTIONS (1)
  - Gastrointestinal haemorrhage [Fatal]
